FAERS Safety Report 5557431-6 (Version None)
Quarter: 2007Q4

REPORT INFORMATION
  Report Type: 
  Country: None (occurrence: None)
  Receive Date: 20071214
  Receipt Date: 20071203
  Transmission Date: 20080405
  Serious: Yes (Hospitalization)
  Sender: FDA-Public Use
  Company Number: US-JNJFOC-20071202092

PATIENT
  Sex: Female
  Weight: 102.06 kg

DRUGS (21)
  1. DURAGESIC-100 [Suspect]
     Indication: NECK PAIN
     Route: 062
  2. DURAGESIC-100 [Suspect]
     Indication: BACK PAIN
     Route: 062
  3. TRAMADOL HCL [Suspect]
     Indication: BACK PAIN
     Route: 048
  4. TRAMADOL HCL [Suspect]
     Indication: NECK PAIN
     Route: 048
  5. TYLENOL (CAPLET) [Suspect]
     Indication: PAIN
     Route: 048
  6. ASPIRIN [Concomitant]
     Indication: ANTICOAGULANT THERAPY
     Route: 048
  7. MAXZIDE [Concomitant]
     Indication: BLOOD PRESSURE
     Route: 048
  8. MAVIK [Concomitant]
     Indication: BLOOD PRESSURE
     Route: 048
  9. NICODERM [Concomitant]
     Indication: SMOKING CESSATION THERAPY
     Route: 062
  10. BENADRYL [Concomitant]
     Indication: MULTIPLE ALLERGIES
     Route: 048
  11. TRIAZOLAM [Concomitant]
     Indication: SLEEP DISORDER
     Route: 048
  12. DIAZEPAM [Concomitant]
     Indication: MUSCLE SPASMS
     Route: 048
  13. BUMEX [Concomitant]
     Dosage: ONE TABLET EVERY OTHER DAY
     Route: 048
  14. SOMA [Concomitant]
     Indication: PAIN
  15. DICLOFENAC SODIUM [Concomitant]
     Indication: PAIN
     Route: 048
  16. PROTONIX [Concomitant]
     Indication: GASTROOESOPHAGEAL REFLUX DISEASE
     Route: 048
  17. SINGULAIR [Concomitant]
     Indication: ASTHMA
     Route: 048
  18. PHENERGAN HCL [Concomitant]
     Indication: NAUSEA
  19. ASCORBIC ACID [Concomitant]
     Route: 048
  20. VITAMIN E [Concomitant]
     Route: 048
  21. LASIX [Concomitant]
     Route: 048

REACTIONS (10)
  - FORMICATION [None]
  - HEADACHE [None]
  - HYPERHIDROSIS [None]
  - INAPPROPRIATE SCHEDULE OF DRUG ADMINISTRATION [None]
  - LUNG INFECTION [None]
  - PHARYNGOLARYNGEAL PAIN [None]
  - SINUS CONGESTION [None]
  - TREMOR [None]
  - WEIGHT DECREASED [None]
  - WRONG TECHNIQUE IN DRUG USAGE PROCESS [None]
